FAERS Safety Report 7443208-3 (Version None)
Quarter: 2011Q2

REPORT INFORMATION
  Report Type: 
  Country: None (occurrence: None)
  Receive Date: 20110428
  Receipt Date: 20110420
  Transmission Date: 20111010
  Serious: Yes (Hospitalization)
  Sender: FDA-Public Use
  Company Number: B0712318A

PATIENT
  Sex: Female

DRUGS (2)
  1. AVANDARYL [Suspect]
     Route: 048
  2. AVANDIA [Suspect]
     Route: 048

REACTIONS (5)
  - CHEST PAIN [None]
  - HYPERTENSION [None]
  - ELECTROCARDIOGRAM ABNORMAL [None]
  - SUPRAVENTRICULAR TACHYCARDIA [None]
  - ATRIAL FIBRILLATION [None]
